FAERS Safety Report 5391992-5 (Version None)
Quarter: 2007Q3

REPORT INFORMATION
  Report Type: 
  Country: None (occurrence: None)
  Receive Date: 20070720
  Receipt Date: 20070711
  Transmission Date: 20080115
  Serious: Yes (Other)
  Sender: FDA-Public Use
  Company Number: JP-JNJFOC-20070703072

PATIENT
  Sex: Male
  Weight: 53 kg

DRUGS (5)
  1. ITRACONAZOLE [Suspect]
     Indication: INTERSTITIAL LUNG DISEASE
     Route: 048
  2. VELCADE [Suspect]
     Indication: MULTIPLE MYELOMA
     Route: 042
  3. DECADRON [Suspect]
     Indication: MULTIPLE MYELOMA
     Route: 042
  4. MEIACT [Suspect]
     Indication: DRUG USE FOR UNKNOWN INDICATION
     Route: 048
  5. BAKTAR [Suspect]
     Indication: DRUG USE FOR UNKNOWN INDICATION
     Route: 048

REACTIONS (2)
  - DIZZINESS [None]
  - INTERSTITIAL LUNG DISEASE [None]
